FAERS Safety Report 9838996 (Version 1)
Quarter: 2014Q1

REPORT INFORMATION
  Report Type: Report from Study
  Country: GB (occurrence: GB)
  Receive Date: 20140123
  Receipt Date: 20140123
  Transmission Date: 20141002
  Serious: Yes (Congenital Anomaly)
  Sender: FDA-Public Use
  Company Number: GB-B.I. PHARMACEUTICALS,INC./RIDGEFIELD-2014-BI-02173BI

PATIENT
  Sex: Female
  Weight: 2.6 kg

DRUGS (3)
  1. VIRAMUNE [Suspect]
     Indication: EXPOSURE DURING PREGNANCY
     Route: 064
     Dates: start: 20030224
  2. VIRAMUNE [Suspect]
     Route: 064
     Dates: start: 20030310
  3. 5-LAMIVUDINE+ZIDOVUDINE (COMBIVIR?, ZDV+3TC) [Concomitant]
     Indication: EXPOSURE DURING PREGNANCY
     Route: 064
     Dates: start: 20030224

REACTIONS (2)
  - Developmental hip dysplasia [Unknown]
  - Pupillary reflex impaired [Unknown]
